FAERS Safety Report 8128294-X (Version None)
Quarter: 2011Q4

REPORT INFORMATION
  Report Type: 
  Country: None (occurrence: None)
  Receive Date: 20111227
  Receipt Date: 20111019
  Transmission Date: 20120403
  Serious: No
  Sender: FDA-Public Use
  Company Number: PHEH2011US07390

PATIENT
  Age: 38 Year
  Sex: Female

DRUGS (1)
  1. GILENYA [Suspect]
     Indication: MULTIPLE SCLEROSIS
     Dosage: 0.5 MG, ORAL
     Route: 048
     Dates: start: 20110427

REACTIONS (7)
  - UPPER RESPIRATORY TRACT INFECTION [None]
  - URINE COLOUR ABNORMAL [None]
  - BLOOD COUNT ABNORMAL [None]
  - DYSSTASIA [None]
  - DYSGEUSIA [None]
  - CYSTITIS [None]
  - HEPATIC ENZYME ABNORMAL [None]
